FAERS Safety Report 6296727-X (Version None)
Quarter: 2009Q3

REPORT INFORMATION
  Report Type: 
  Country: None (occurrence: None)
  Receive Date: 20090804
  Receipt Date: 20090723
  Transmission Date: 20100115
  Serious: Yes (Hospitalization, Other)
  Sender: FDA-Public Use
  Company Number: US-AVENTIS-200916557US

PATIENT
  Sex: Female

DRUGS (5)
  1. APIDRA [Suspect]
     Dosage: DOSE: 1 UNIT FOR EVERY CARBOHYDRATE
     Route: 051
     Dates: end: 20081001
  2. OPTICLIK (INSULIN INJECTION PEN) [Suspect]
  3. LANTUS [Concomitant]
     Route: 058
     Dates: start: 20050101
  4. ORAL ANTIDIABETICS [Concomitant]
     Dosage: DOSE: UNK
  5. TRICOR [Concomitant]
     Dosage: DOSE: UNK

REACTIONS (3)
  - DIABETIC COMA [None]
  - KNEE ARTHROPLASTY [None]
  - STAPHYLOCOCCAL INFECTION [None]
